FAERS Safety Report 7907654-3 (Version None)
Quarter: 2011Q4

REPORT INFORMATION
  Report Type: 
  Country: None (occurrence: None)
  Receive Date: 20111110
  Receipt Date: 20111109
  Transmission Date: 20120403
  Serious: Yes (Life-Threatening, Hospitalization)
  Sender: FDA-Public Use
  Company Number: AU-B.I. PHARMACEUTICALS,INC./RIDGEFIELD-2011-AU-01418AU

PATIENT
  Sex: Male
  Weight: 105 kg

DRUGS (5)
  1. DIGOXIN [Concomitant]
  2. PERINDOPRIL ERBUMINE [Concomitant]
     Dosage: 5/1.25 MG
  3. SYMBICORT [Concomitant]
  4. PRADAXA [Suspect]
     Indication: ATRIAL FIBRILLATION
     Dosage: 300 MG
     Dates: start: 20110630, end: 20110913
  5. ZOCOR [Concomitant]

REACTIONS (5)
  - HAEMORRHAGE INTRACRANIAL [None]
  - SUBDURAL HAEMATOMA [None]
  - LOWER RESPIRATORY TRACT INFECTION [None]
  - CHILLS [None]
  - GRAND MAL CONVULSION [None]
